FAERS Safety Report 7289080-6 (Version None)
Quarter: 2011Q1

REPORT INFORMATION
  Report Type: 
  Country: None (occurrence: None)
  Receive Date: 20110201
  Receipt Date: 20110125
  Transmission Date: 20110831
  Serious: Yes (Other)
  Sender: FDA-Public Use
  Company Number: 2011SP003663

PATIENT
  Age: 29 Year
  Sex: Female

DRUGS (4)
  1. WELLBUTRIN [Concomitant]
  2. KLONOPIN [Concomitant]
  3. SAPHRIS [Suspect]
     Indication: BIPOLAR DISORDER
     Dosage: 10 MG, HS, SL
     Route: 060
     Dates: start: 20110112, end: 20110115
  4. SEROQUEL [Concomitant]

REACTIONS (1)
  - ANAPHYLACTIC REACTION [None]
